FAERS Safety Report 7745246-X (Version None)
Quarter: 2011Q3

REPORT INFORMATION
  Report Type: 
  Country: None (occurrence: None)
  Receive Date: 20110913
  Receipt Date: 20110902
  Transmission Date: 20111222
  Serious: Yes (Hospitalization)
  Sender: FDA-Public Use
  Company Number: US-JNJFOC-20110902392

PATIENT
  Sex: Male
  Weight: 30.1 kg

DRUGS (11)
  1. REMICADE [Suspect]
     Route: 042
     Dates: start: 20110522
  2. CALCIUM 600 AND VITAMIN D [Concomitant]
  3. REMICADE [Suspect]
     Route: 042
     Dates: start: 20101110
  4. BUDESONIDE [Concomitant]
  5. REMICADE [Suspect]
     Route: 042
     Dates: start: 20060720
  6. NEXIUM [Concomitant]
  7. PROBIOTICS [Concomitant]
  8. SLOW RELEASE IRON [Concomitant]
  9. REMICADE [Suspect]
     Indication: INFLAMMATORY BOWEL DISEASE
     Route: 042
     Dates: start: 20100921
  10. FISH OIL [Concomitant]
  11. MULTI-VITAMINS [Concomitant]

REACTIONS (1)
  - FAILURE TO THRIVE [None]
